FAERS Safety Report 13227944 (Version 6)
Quarter: 2022Q1

REPORT INFORMATION
  Report Type: Spontaneous
  Country: GB (occurrence: GB)
  Receive Date: 20170213
  Receipt Date: 20220310
  Transmission Date: 20220424
  Serious: Yes (Hospitalization, Other)
  Sender: FDA-Public Use
  Company Number: PHHY2017GB018424

PATIENT
  Age: 55 Year
  Sex: Male

DRUGS (23)
  1. IVABRADINE [Suspect]
     Active Substance: IVABRADINE
     Indication: Angina pectoris
     Dosage: 5 MG, BID
     Route: 065
     Dates: start: 20150211
  2. IVABRADINE [Suspect]
     Active Substance: IVABRADINE
     Dosage: 5 MG, QD
     Route: 065
     Dates: start: 20150211
  3. FUROSEMIDE [Suspect]
     Active Substance: FUROSEMIDE
     Indication: Left ventricular dysfunction
     Dosage: UNK
     Route: 065
  4. FUROSEMIDE [Suspect]
     Active Substance: FUROSEMIDE
     Indication: Pulmonary oedema
     Dosage: 40 MG, QD
     Route: 065
     Dates: start: 20160402
  5. FUROSEMIDE [Suspect]
     Active Substance: FUROSEMIDE
     Indication: Lung disorder
  6. RAMIPRIL [Suspect]
     Active Substance: RAMIPRIL
     Indication: Cardiac failure
     Dosage: 1.25 MG, QD
     Route: 048
     Dates: start: 20130813, end: 20160629
  7. CARVEDILOL [Suspect]
     Active Substance: CARVEDILOL
     Indication: Angina pectoris
     Dosage: 25 MG, BID
     Route: 065
     Dates: start: 20110616
  8. ISOSORBIDE MONONITRATE [Suspect]
     Active Substance: ISOSORBIDE MONONITRATE
     Indication: Angina pectoris
     Dosage: ORAL FORMULATION: DURULE
     Route: 048
     Dates: start: 20160205
  9. OMEPRAZOLE [Suspect]
     Active Substance: OMEPRAZOLE
     Indication: Dyspepsia
     Dosage: UNK
     Route: 048
     Dates: start: 20140116
  10. BOCOCIZUMAB [Suspect]
     Active Substance: BOCOCIZUMAB
     Indication: Cardiovascular disorder
     Dosage: 150 MG, BIW (FREQUENCY- EVERY 2 WEEKS)
     Route: 058
     Dates: start: 20150908
  11. QUETIAPINE FUMARATE [Suspect]
     Active Substance: QUETIAPINE FUMARATE
     Indication: Depression
     Dosage: UNK
     Route: 048
     Dates: start: 20150826
  12. ASPIRIN [Concomitant]
     Active Substance: ASPIRIN
     Indication: Cardiovascular disorder
     Route: 065
     Dates: start: 20130708
  13. ATORVASTATIN [Concomitant]
     Active Substance: ATORVASTATIN
     Indication: Cardiovascular disorder
     Route: 065
     Dates: start: 20130708
  14. NITROGLYCERIN [Concomitant]
     Active Substance: NITROGLYCERIN
     Indication: Cardiovascular disorder
     Route: 065
     Dates: start: 20130902
  15. NITROGLYCERIN [Concomitant]
     Active Substance: NITROGLYCERIN
     Indication: Pain
  16. ACETAMINOPHEN\CODEINE PHOSPHATE [Concomitant]
     Active Substance: ACETAMINOPHEN\CODEINE PHOSPHATE
     Indication: Pain in extremity
     Route: 065
     Dates: start: 20110616
  17. SERTRALINE HYDROCHLORIDE [Concomitant]
     Active Substance: SERTRALINE HYDROCHLORIDE
     Indication: Depression
     Route: 065
     Dates: start: 20110816
  18. ACETAMINOPHEN [Concomitant]
     Active Substance: ACETAMINOPHEN
     Indication: Pain in extremity
     Dosage: UNK
     Route: 065
     Dates: start: 20110616
  19. CODEINE PHOSPHATE [Concomitant]
     Active Substance: CODEINE PHOSPHATE
     Indication: Product used for unknown indication
     Route: 065
  20. ENTRESTO [Concomitant]
     Active Substance: SACUBITRIL\VALSARTAN
     Indication: Ventricular dysfunction
     Dosage: 49/51
     Route: 065
     Dates: start: 20160701
  21. FOLIC ACID [Concomitant]
     Active Substance: FOLIC ACID
     Indication: Anaemia
     Dosage: UNK
     Route: 065
     Dates: start: 20131211
  22. METHOTREXATE [Concomitant]
     Active Substance: METHOTREXATE
     Indication: Psoriasis
     Route: 065
     Dates: start: 20150727
  23. BETAMETHASONE DIPROPIONATE\CLOTRIMAZOLE [Concomitant]
     Active Substance: BETAMETHASONE DIPROPIONATE\CLOTRIMAZOLE
     Indication: Psoriasis
     Route: 065
     Dates: start: 20150626

REACTIONS (12)
  - Pulmonary oedema [Unknown]
  - Hypotension [Recovered/Resolved]
  - Cardiac failure [Unknown]
  - Ventricular dysfunction [Unknown]
  - Anaemia [Unknown]
  - Angina pectoris [Unknown]
  - Presyncope [Unknown]
  - Contusion [Recovered/Resolved]
  - Oedema peripheral [Recovered/Resolved]
  - Psoriasis [Unknown]
  - Fluid retention [Unknown]
  - Contusion [Not Recovered/Not Resolved]

NARRATIVE: CASE EVENT DATE: 20130919
